FAERS Safety Report 6141938-7 (Version None)
Quarter: 2009Q2

REPORT INFORMATION
  Report Type: 
  Country: None (occurrence: None)
  Receive Date: 20090402
  Receipt Date: 20090327
  Transmission Date: 20091009
  Serious: Yes (Death, Hospitalization)
  Sender: FDA-Public Use
  Company Number: US-ELI_LILLY_AND_COMPANY-US200903007476

PATIENT
  Sex: Male

DRUGS (2)
  1. ALIMTA [Suspect]
     Indication: NON-SMALL CELL LUNG CANCER
  2. TARCEVA [Concomitant]
     Indication: NON-SMALL CELL LUNG CANCER
     Dosage: 150 MG, UNK

REACTIONS (2)
  - DEATH [None]
  - RESPIRATORY DISTRESS [None]
